FAERS Safety Report 9255531 (Version 2)
Quarter: 2013Q4

REPORT INFORMATION
  Report Type: Spontaneous
  Country: US (occurrence: None)
  Receive Date: 20121207
  Receipt Date: 20131219
  Transmission Date: 20140711
  Serious: Yes (Hospitalization, Other)
  Sender: FDA-Public Use
  Company Number: 2012SCPR004570

PATIENT
  Age: 68 Year
  Sex: Male
  Weight: 83.9 kg

DRUGS (6)
  1. IMIPRAMINE HYDROCHLORIDE [Suspect]
     Indication: PARKINSON^S DISEASE
     Dosage: 50MG, BEDTIME, ORAL
     Route: 048
     Dates: start: 201205, end: 20120725
  2. AVODART (DUTASTERIDE) CAPSULES [Concomitant]
  3. FLOMAX [Concomitant]
  4. DITROPAN (OXYBUTYNIN HYDROCHLORIDE) [Concomitant]
  5. SINEMET (CARBIDPA, LEVODOPA) [Concomitant]
  6. ZONISAMIDE (ZONISAMIDE) UNKNOWN [Concomitant]

REACTIONS (4)
  - Myocardial infarction [None]
  - Heart rate increased [None]
  - Dizziness [None]
  - Vomiting [None]
